FAERS Safety Report 4438890-9 (Version None)
Quarter: 2004Q3

REPORT INFORMATION
  Report Type: 
  Country: None (occurrence: None)
  Receive Date: 20040901
  Receipt Date: 20040823
  Transmission Date: 20050211
  Serious: Yes (Hospitalization)
  Sender: FDA-Public Use
  Company Number: DE-BRISTOL-MYERS SQUIBB COMPANY-12679551

PATIENT
  Age: 54 Year
  Sex: Female
  Weight: 74 kg

DRUGS (2)
  1. PACLITAXEL [Suspect]
     Indication: CERVIX CARCINOMA
     Route: 042
     Dates: start: 20040505, end: 20040505
  2. CARBOPLATIN [Suspect]
     Indication: CERVIX CARCINOMA
     Dosage: AUC 5
     Route: 042
     Dates: start: 20040505, end: 20040505

REACTIONS (2)
  - LEUKOPENIA [None]
  - PYELONEPHRITIS [None]
